FAERS Safety Report 17461421 (Version 1)
Quarter: 2020Q1

REPORT INFORMATION
  Report Type: Spontaneous
  Country: US (occurrence: US)
  Receive Date: 20200226
  Receipt Date: 20200226
  Transmission Date: 20200409
  Serious: Yes (Other)
  Sender: FDA-Public Use
  Company Number: US-ROCHE-2551579

PATIENT
  Sex: Male

DRUGS (4)
  1. CEFTIN [Concomitant]
     Active Substance: CEFUROXIME AXETIL
  2. XOLAIR [Suspect]
     Active Substance: OMALIZUMAB
     Route: 065
     Dates: start: 201811
  3. XOLAIR [Suspect]
     Active Substance: OMALIZUMAB
     Route: 065
     Dates: start: 201806
  4. XOLAIR [Suspect]
     Active Substance: OMALIZUMAB
     Indication: URTICARIA
     Route: 065
     Dates: start: 201810

REACTIONS (7)
  - Hepatic cyst [Unknown]
  - Drug ineffective [Unknown]
  - Pyrexia [Unknown]
  - Pulmonary mass [Unknown]
  - Cytomegalovirus infection [Unknown]
  - Sinusitis [Unknown]
  - Nasopharyngitis [Unknown]
